FAERS Safety Report 25824769 (Version 1)
Quarter: 2025Q3

REPORT INFORMATION
  Report Type: Spontaneous
  Country: US (occurrence: US)
  Receive Date: 20250919
  Receipt Date: 20250919
  Transmission Date: 20251020
  Serious: No
  Sender: SANOFI AVENTIS
  Company Number: US-SA-2025SA276229

PATIENT
  Sex: Male

DRUGS (2)
  1. QFITLIA [Suspect]
     Active Substance: FITUSIRAN
     Indication: Prophylaxis
     Route: 058
     Dates: start: 202507
  2. QFITLIA [Suspect]
     Active Substance: FITUSIRAN
     Route: 058

REACTIONS (1)
  - Antithrombin III deficiency [Unknown]
